FAERS Safety Report 25164082 (Version 2)
Quarter: 2025Q2

REPORT INFORMATION
  Report Type: Report from Study
  Country: US (occurrence: US)
  Receive Date: 20250405
  Receipt Date: 20250425
  Transmission Date: 20250717
  Serious: Yes (Hospitalization, Other)
  Sender: ABBVIE
  Company Number: US-ABBVIE-6210526

PATIENT
  Sex: Male

DRUGS (1)
  1. UBRELVY [Suspect]
     Active Substance: UBROGEPANT
     Indication: Product used for unknown indication
     Route: 048
     Dates: start: 20230101

REACTIONS (7)
  - Myocardial infarction [Unknown]
  - Poor peripheral circulation [Unknown]
  - Migraine [Unknown]
  - Cardiogenic shock [Unknown]
  - Unevaluable event [Unknown]
  - Cardiac disorder [Unknown]
  - Illness [Unknown]
